FAERS Safety Report 6179945-0 (Version None)
Quarter: 2009Q2

REPORT INFORMATION
  Report Type: 
  Country: None (occurrence: None)
  Receive Date: 20090505
  Receipt Date: 20090423
  Transmission Date: 20091009
  Serious: Yes (Death, Other)
  Sender: FDA-Public Use
  Company Number: MX-GENENTECH-282276

PATIENT

DRUGS (4)
  1. ACTIVASE [Suspect]
     Indication: PULMONARY EMBOLISM
     Dosage: UNK
     Route: 042
  2. UNFRACTIONATED HEPARIN [Suspect]
     Indication: ANTICOAGULANT THERAPY
     Dosage: 60 U/KG, UNK
     Route: 040
  3. UNFRACTIONATED HEPARIN [Suspect]
     Dosage: 12 U/KG/H, CONTINUOUS
     Route: 042
  4. ENOXAPARIN SODIUM [Suspect]
     Indication: ANTICOAGULANT THERAPY
     Dosage: 1 MG/KG, Q12H
     Route: 058

REACTIONS (5)
  - DEATH [None]
  - DRUG INEFFECTIVE [None]
  - HAEMATOMA [None]
  - HAEMORRHAGE [None]
  - PULMONARY EMBOLISM [None]
